FAERS Safety Report 25930575 (Version 1)
Quarter: 2025Q4

REPORT INFORMATION
  Report Type: Spontaneous
  Country: US (occurrence: None)
  Receive Date: 20251015
  Receipt Date: 20251015
  Transmission Date: 20260118
  Serious: Yes (Death)
  Sender: FDA-CTU
  Company Number: None

PATIENT
  Age: 64 Year
  Sex: Female

DRUGS (2)
  1. RILUZOLE [Suspect]
     Active Substance: RILUZOLE
     Indication: Amyotrophic lateral sclerosis
  2. RILUZOLE [Suspect]
     Active Substance: RILUZOLE
     Indication: Peroneal nerve palsy

REACTIONS (1)
  - Death [None]

NARRATIVE: CASE EVENT DATE: 20251004
